FAERS Safety Report 12539990 (Version 1)
Quarter: 2016Q3

REPORT INFORMATION
  Report Type: Spontaneous
  Country: US (occurrence: None)
  Receive Date: 20160707
  Receipt Date: 20160707
  Transmission Date: 20161109
  Serious: Yes (Disabling)
  Sender: FDA-Public Use
  Company Number: None

PATIENT
  Age: 70 Year
  Sex: Female

DRUGS (9)
  1. RECLAST [Suspect]
     Active Substance: ZOLEDRONIC ACID
     Indication: OSTEOPENIA
     Route: 042
     Dates: start: 20150407
  2. VITAMIN D [Concomitant]
     Active Substance: CHOLECALCIFEROL
  3. VITAMIN B6 [Concomitant]
     Active Substance: PYRIDOXINE HYDROCHLORIDE
  4. DEXILANT [Concomitant]
     Active Substance: DEXLANSOPRAZOLE
  5. LEXEPRO [Concomitant]
  6. LIPITOR [Concomitant]
     Active Substance: ATORVASTATIN CALCIUM
  7. LISINOPRIL. [Concomitant]
     Active Substance: LISINOPRIL
  8. CPAP [Concomitant]
     Active Substance: DEVICE
  9. CALCIUM [Concomitant]
     Active Substance: CALCIUM

REACTIONS (20)
  - Pain [None]
  - Abdominal pain upper [None]
  - Vision blurred [None]
  - Ulcer [None]
  - Pyrexia [None]
  - Confusional state [None]
  - Irritability [None]
  - Dizziness [None]
  - Rash [None]
  - Asthenia [None]
  - Dyspnoea [None]
  - Pallor [None]
  - Muscle spasms [None]
  - Chills [None]
  - Feeling abnormal [None]
  - Dyspepsia [None]
  - Nausea [None]
  - Haematochezia [None]
  - Dry mouth [None]
  - Decreased interest [None]

NARRATIVE: CASE EVENT DATE: 20150407
